FAERS Safety Report 24685013 (Version 1)
Quarter: 2024Q4

REPORT INFORMATION
  Report Type: Spontaneous
  Country: KZ (occurrence: KZ)
  Receive Date: 20241202
  Receipt Date: 20241202
  Transmission Date: 20250114
  Serious: Yes (Disabling, Other)
  Sender: TAKEDA
  Company Number: KZ-TAKEDA-2024TUS118651

PATIENT
  Age: 34 Year
  Sex: Female
  Weight: 72 kg

DRUGS (1)
  1. ENTYVIO [Suspect]
     Active Substance: VEDOLIZUMAB
     Indication: Crohn^s disease
     Dosage: 300 MILLIGRAM

REACTIONS (4)
  - Crohn^s disease [Unknown]
  - Pulmonary mass [Unknown]
  - Pyrexia [Unknown]
  - Product preparation error [Unknown]

NARRATIVE: CASE EVENT DATE: 20240301
